FAERS Safety Report 6323481-5 (Version None)
Quarter: 2009Q3

REPORT INFORMATION
  Report Type: 
  Country: None (occurrence: None)
  Receive Date: 20090824
  Receipt Date: 20090611
  Transmission Date: 20100115
  Serious: No
  Sender: FDA-Public Use
  Company Number: US-ABBOTT-09P-163-0579672-00

PATIENT
  Sex: Female
  Weight: 61.29 kg

DRUGS (6)
  1. NIASPAN [Suspect]
     Indication: LIPOPROTEIN (A)
     Route: 048
     Dates: start: 20090501, end: 20090603
  2. CRESTOR [Concomitant]
     Indication: LOW DENSITY LIPOPROTEIN INCREASED
     Route: 050
  3. CRESTOR [Concomitant]
     Indication: BLOOD CHOLESTEROL INCREASED
  4. ADVAIR HFA [Concomitant]
     Indication: ASTHMA
     Route: 055
  5. VENTALIN [Concomitant]
     Indication: ASTHMA
     Dosage: AS NEEDED
     Route: 055
  6. MICARTIS/HCT [Concomitant]
     Indication: HYPERTENSION
     Dosage: 40/12.5 MG ONCE DAILY
     Route: 048

REACTIONS (1)
  - FLUSHING [None]
